FAERS Safety Report 15114036 (Version 1)
Quarter: 2018Q3

REPORT INFORMATION
  Report Type: Spontaneous
  Country: US (occurrence: US)
  Receive Date: 20180706
  Receipt Date: 20180706
  Transmission Date: 20181010
  Serious: No
  Sender: FDA-Public Use
  Company Number: US-CELGENEUS-USA-20180610187

PATIENT
  Age: 67 Year
  Sex: Female

DRUGS (4)
  1. METHOTREXATE. [Concomitant]
     Active Substance: METHOTREXATE
     Indication: OSTEOARTHRITIS
  2. METHOTREXATE. [Concomitant]
     Active Substance: METHOTREXATE
     Indication: PSORIATIC ARTHROPATHY
     Route: 065
  3. OTEZLA [Suspect]
     Active Substance: APREMILAST
     Indication: PSORIASIS
  4. OTEZLA [Suspect]
     Active Substance: APREMILAST
     Indication: PSORIATIC ARTHROPATHY
     Dosage: 10MG, 20MG, 30MG (STARTER PACK ? AS DIRECTED)
     Route: 048
     Dates: start: 201804, end: 201804

REACTIONS (4)
  - Adverse drug reaction [Recovered/Resolved]
  - Diarrhoea [Recovered/Resolved]
  - Pain [Unknown]
  - Therapy non-responder [Unknown]

NARRATIVE: CASE EVENT DATE: 201804
